FAERS Safety Report 6385740-X (Version None)
Quarter: 2009Q4

REPORT INFORMATION
  Report Type: 
  Country: None (occurrence: None)
  Receive Date: 20091002
  Receipt Date: 20080930
  Transmission Date: 20100525
  Serious: No
  Sender: FDA-Public Use
  Company Number: US-ASTRAZENECA-2008UW21060

PATIENT
  Age: 86 Year
  Sex: Female

DRUGS (3)
  1. ARIMIDEX [Suspect]
     Route: 048
     Dates: start: 20051201
  2. LIPITOR [Concomitant]
  3. THYROID MEDICATION [Concomitant]

REACTIONS (2)
  - ARTHRITIS [None]
  - MUSCULAR WEAKNESS [None]
